FAERS Safety Report 6692811-7 (Version None)
Quarter: 2010Q2

REPORT INFORMATION
  Report Type: 
  Country: None (occurrence: None)
  Receive Date: 20100419
  Receipt Date: 20100402
  Transmission Date: 20101027
  Serious: Yes (Life-Threatening, Hospitalization, Other)
  Sender: FDA-Public Use
  Company Number: DSA_42885_2010

PATIENT
  Sex: Male

DRUGS (1)
  1. DILTIAZEM HYDROCHLORIDE [Suspect]
     Indication: SUICIDE ATTEMPT
     Dosage: 3 G 1X, NOT THE PRESCRIBED AMOUNT ORAL
     Route: 048
     Dates: start: 20090918, end: 20090918

REACTIONS (5)
  - CONTINUOUS HAEMODIAFILTRATION [None]
  - POISONING [None]
  - RENAL IMPAIRMENT [None]
  - SHOCK [None]
  - SUICIDE ATTEMPT [None]
